FAERS Safety Report 16322356 (Version 2)
Quarter: 2021Q1

REPORT INFORMATION
  Report Type: Spontaneous
  Country: AU (occurrence: AU)
  Receive Date: 20190516
  Receipt Date: 20210303
  Transmission Date: 20210419
  Serious: Yes (Hospitalization)
  Sender: FDA-Public Use
  Company Number: AU-JNJFOC-20190518470

PATIENT
  Age: 74 Year
  Sex: Male

DRUGS (6)
  1. CYCLOSPORIN [Concomitant]
     Active Substance: CYCLOSPORINE
     Dosage: 75 MG, BID
  2. PREDNISOLONE. [Concomitant]
     Active Substance: PREDNISOLONE
     Dosage: 10 MG, QD
  3. MYCOPHENOLIC ACID. [Concomitant]
     Active Substance: MYCOPHENOLIC ACID
     Dosage: 720 MG, BID
  4. TRIMETHOPRIM. [Concomitant]
     Active Substance: TRIMETHOPRIM
     Dosage: 80 MG, QD
  5. SULFAMETHOXAZOLE [Concomitant]
     Active Substance: SULFAMETHOXAZOLE
     Dosage: 400 MG, QD
  6. XARELTO [Suspect]
     Active Substance: RIVAROXABAN
     Indication: DEEP VEIN THROMBOSIS
     Dosage: 20 MG
     Route: 048

REACTIONS (3)
  - Cardiac valve vegetation [Unknown]
  - Prosthetic cardiac valve thrombosis [Unknown]
  - Aortic valve stenosis [Unknown]
